FAERS Safety Report 6601500-6 (Version None)
Quarter: 2010Q1

REPORT INFORMATION
  Report Type: 
  Country: None (occurrence: None)
  Receive Date: 20100225
  Receipt Date: 20100216
  Transmission Date: 20100710
  Serious: Yes (Hospitalization)
  Sender: FDA-Public Use
  Company Number: DE-B.I. PHARMACEUTICALS,INC./RIDGEFIELD-2010-DE-00118BY

PATIENT
  Sex: Male

DRUGS (23)
  1. TELMISARTAN [Suspect]
     Indication: RENAL FAILURE CHRONIC
     Dosage: 80 MG
     Route: 048
     Dates: start: 20091215
  2. TELMISARTAN [Suspect]
     Indication: HYPERTENSION
  3. FERRLECIT [Concomitant]
     Indication: IRON DEFICIENCY
     Dosage: 8.93 MG
     Route: 065
     Dates: start: 20081120
  4. CLEXANE [Concomitant]
     Indication: THROMBOSIS PROPHYLAXIS
     Dosage: 0.23 ML
     Route: 065
     Dates: start: 20100102
  5. AMPICILLIN AND SULBACTAM [Concomitant]
     Dosage: 2000 MG
     Route: 065
     Dates: start: 20100102
  6. CPS [Concomitant]
     Indication: HYPERKALAEMIA
     Dosage: 1 G
     Route: 065
     Dates: start: 20080508
  7. DEDREI [Concomitant]
     Indication: VITAMIN D
     Dosage: 10 MG
     Route: 065
     Dates: start: 20091217
  8. LACTULOSE [Concomitant]
     Indication: CONSTIPATION
     Dosage: 100 ML
     Route: 065
     Dates: start: 20080805
  9. FOSRENOL [Concomitant]
     Indication: HYPERPHOSPHATAEMIA
     Dosage: 750 MG
     Route: 065
     Dates: start: 20091124
  10. IMIGRAN [Concomitant]
     Dosage: 20 MG
     Route: 045
     Dates: start: 20090122
  11. SIMVASTATIN [Concomitant]
     Indication: HYPERCHOLESTEROLAEMIA
     Dosage: 20 MG
     Route: 065
     Dates: start: 20090128
  12. MCP RATIOPHARM [Concomitant]
     Indication: ABDOMINAL PAIN UPPER
     Route: 065
     Dates: start: 20090319
  13. PANTOZOL [Concomitant]
     Indication: REFLUX OESOPHAGITIS
     Dosage: 40 MG
     Route: 065
     Dates: start: 20090331
  14. NEBIVOLOL [Concomitant]
     Indication: ESSENTIAL HYPERTENSION
     Dosage: 5 MG
     Route: 065
     Dates: start: 20090331
  15. AMLODIPINE [Concomitant]
     Indication: HYPERTENSION
     Dosage: 20 MG
     Route: 065
  16. ZOLPIDEM [Concomitant]
     Indication: SLEEP DISORDER
     Dosage: 5 MG
     Route: 065
     Dates: start: 20090604
  17. TRAMADOL HCL [Concomitant]
     Indication: PAIN
     Dosage: 100 MG
     Route: 065
     Dates: start: 20090618
  18. RENILON [Concomitant]
     Route: 065
     Dates: start: 20090801
  19. NOVAMINSULFON [Concomitant]
     Indication: PAIN
     Route: 065
     Dates: start: 20090813
  20. VITARENAL [Concomitant]
     Indication: VITAMIN C DEFICIENCY
     Dosage: 1 NR
     Route: 065
     Dates: start: 20090813
  21. RENVELA [Concomitant]
     Indication: HYPERPHOSPHATAEMIA
     Dosage: 800 MG
     Route: 065
     Dates: start: 20091014
  22. MOXONIDIN [Concomitant]
     Indication: HYPERTENSION
     Dosage: 0.6 MG
     Route: 065
     Dates: start: 20091210
  23. SILAPO [Concomitant]
     Indication: ANAEMIA
     Dosage: 1714 U
     Route: 065
     Dates: start: 20090717

REACTIONS (1)
  - PATELLA FRACTURE [None]
